FAERS Safety Report 6082625-3 (Version None)
Quarter: 2009Q1

REPORT INFORMATION
  Report Type: 
  Country: None (occurrence: None)
  Receive Date: 20090202
  Receipt Date: 20070913
  Transmission Date: 20090719
  Serious: Yes (Hospitalization)
  Sender: FDA-Public Use
  Company Number: 265924

PATIENT
  Age: 36 Year
  Sex: Female

DRUGS (3)
  1. NOVOLOG [Suspect]
     Indication: TYPE 1 DIABETES MELLITUS
     Dosage: 0.725 TO 1.00 UNITS BASAL/HR + BOLUSES, SUBCUTAN.-PUMP
     Dates: start: 20040101, end: 20070710
  2. NOVOLOG [Suspect]
     Indication: TYPE 1 DIABETES MELLITUS
     Dosage: 0.725 TO 1.00 UNITS BASAL/HR + BOLUSES, SUBCUTAN.-PUMP
     Dates: start: 20070712
  3. ESTROTEST (BENZYL ALCOHOL, ESTRADIOL UNDECYLATE, TESTOSTERONE PHENYLPR [Concomitant]

REACTIONS (1)
  - BLOOD GLUCOSE INCREASED [None]
